FAERS Safety Report 8566545-8 (Version None)
Quarter: 2012Q3

REPORT INFORMATION
  Report Type: 
  Country: None (occurrence: None)
  Receive Date: 20120803
  Receipt Date: 20111019
  Transmission Date: 20120928
  Serious: No
  Sender: FDA-Public Use
  Company Number: US-ABBOTT-11P-163-0868333-00

PATIENT
  Sex: Female
  Weight: 48.578 kg

DRUGS (6)
  1. PRAVASTATIN [Concomitant]
     Indication: BLOOD CHOLESTEROL INCREASED
  2. HORMONES [Concomitant]
     Indication: HORMONE REPLACEMENT THERAPY
  3. VITAMIN TAB [Concomitant]
     Indication: VITAMIN SUPPLEMENTATION
  4. RYTHMOL [Concomitant]
     Indication: ATRIAL FIBRILLATION
  5. NIASPAN [Suspect]
     Indication: BLOOD CHOLESTEROL INCREASED
     Route: 048
     Dates: start: 20111006
  6. AMLODIPINE [Concomitant]
     Indication: HYPERTENSION

REACTIONS (1)
  - FATIGUE [None]
